FAERS Safety Report 10060945 (Version 3)
Quarter: 2014Q2

REPORT INFORMATION
  Report Type: Spontaneous
  Country: US (occurrence: US)
  Receive Date: 20140404
  Receipt Date: 20140521
  Transmission Date: 20141212
  Serious: Yes (Hospitalization, Other)
  Sender: FDA-Public Use
  Company Number: PHHY2014US033332

PATIENT
  Sex: Male

DRUGS (19)
  1. RITALIN [Suspect]
     Dosage: 1 DF, BID
     Route: 048
  2. BACLOFEN INTRATHECAL [Suspect]
     Indication: PAIN
     Dosage: 107.32 UG / DAY
     Route: 037
  3. BACLOFEN INTRATHECAL [Suspect]
     Dosage: DOSE INCREASED GRADUALLY
     Route: 037
  4. BACLOFEN [Suspect]
     Dosage: 1 DF, TID
     Route: 048
  5. CLONAZEPAM [Suspect]
     Dosage: 1 DF, TID
     Route: 048
  6. PROMETHAZINE [Suspect]
     Indication: NAUSEA
     Dosage: 1 DF, TID
     Route: 048
  7. GABAPENTIN [Suspect]
     Indication: PAIN
     Dosage: ONE TO TWO UNITS EVERY FOUR TO SIX HOURS AS NEEDED
     Route: 048
  8. TESTOSTERONE CYPIONATE INJECTION USP [Suspect]
     Dosage: (200MG/1ML)
  9. MORPHINE [Suspect]
     Dosage: 0.6504 UG/DAY
     Route: 037
  10. MORPHINE [Suspect]
     Dosage: DOSE INCREASED GRADUALLY
     Route: 037
  11. FENTANYL [Suspect]
     Dosage: 650.4 UG, UNK
     Route: 037
  12. FENTANYL [Suspect]
     Dosage: 250 UG / PER DAY CONTINUOUS RATE
     Route: 037
  13. FENTANYL [Suspect]
     Dosage: DOSE INCREASED GRADUALLY
     Route: 037
  14. BUPIVACAINE [Suspect]
     Dosage: UNK UKN, UNK
     Route: 037
  15. OXYCODONE HCL [Suspect]
     Indication: PAIN
     Dosage: ONE OR TWO TABLETS EVERY 6 HS
     Route: 048
  16. MORPHINE SULFATE [Suspect]
     Dosage: 1 DF, UNK
     Route: 048
  17. WELLBUTRIN SR [Suspect]
     Dosage: 1 DF, BID
     Route: 048
  18. MULTAQ [Suspect]
     Dosage: 1 DF, BID (WITH MORNING AND EVENING MEALS)
     Route: 048
  19. PRADAXA [Suspect]
     Dosage: 1 DF, BID
     Route: 048

REACTIONS (5)
  - Burning sensation [Unknown]
  - Back pain [Unknown]
  - Pain [Unknown]
  - Therapeutic response decreased [Unknown]
  - Incorrect route of drug administration [Unknown]
